FAERS Safety Report 19942212 (Version 4)
Quarter: 2024Q3

REPORT INFORMATION
  Report Type: Report from Study
  Country: GB (occurrence: GB)
  Receive Date: 20211012
  Receipt Date: 20240902
  Transmission Date: 20241017
  Serious: Yes (Hospitalization)
  Sender: ABBVIE
  Company Number: GB-ABBVIE-21K-167-4112947-00

PATIENT
  Age: 65 Year
  Sex: Male

DRUGS (15)
  1. RISANKIZUMAB [Suspect]
     Active Substance: RISANKIZUMAB
     Indication: Psoriasis
     Route: 058
     Dates: start: 20201119
  2. DOVONEX [Concomitant]
     Active Substance: CALCIPOTRIENE
     Indication: Psoriasis
     Route: 061
     Dates: start: 20191213
  3. PERINDOPRIL [Concomitant]
     Active Substance: PERINDOPRIL
     Indication: Cardiac disorder
     Dosage: 2.50 MG
     Route: 048
     Dates: start: 20201004, end: 20210530
  4. PERINDOPRIL [Concomitant]
     Active Substance: PERINDOPRIL
     Indication: Cardiac disorder
     Dosage: 2.50 MG
     Route: 048
     Dates: start: 20201014
  5. MOMETASONE [Concomitant]
     Active Substance: MOMETASONE
     Indication: General symptom
     Dates: start: 20220614
  6. BETNOVATE [Concomitant]
     Active Substance: BETAMETHASONE
     Indication: Eczema
     Route: 061
     Dates: start: 20220118
  7. CIPROFLOXACIN [Concomitant]
     Active Substance: CIPROFLOXACIN
     Indication: Antibiotic therapy
     Route: 048
     Dates: start: 20210530, end: 20210612
  8. NEBIVOLOL [Concomitant]
     Active Substance: NEBIVOLOL
     Indication: Sepsis
     Dosage: 2.50 MG
     Route: 048
     Dates: start: 20220614, end: 20220628
  9. EPLERENONE [Concomitant]
     Active Substance: EPLERENONE
     Indication: Sepsis
     Route: 048
     Dates: start: 20220614
  10. CANDESARTAN [Concomitant]
     Active Substance: CANDESARTAN
     Indication: Cardiac disorder
     Route: 048
     Dates: start: 20210531
  11. CETIRIZINE [Concomitant]
     Active Substance: CETIRIZINE HYDROCHLORIDE
     Indication: General symptom
     Route: 048
     Dates: start: 20220614
  12. BISOPROLOL [Concomitant]
     Active Substance: BISOPROLOL\BISOPROLOL FUMARATE
     Indication: Cardiac disorder
     Dosage: 2.50 MG
     Route: 048
     Dates: start: 20210531
  13. PIPERACILLIN SODIUM\TAZOBACTAM SODIUM [Concomitant]
     Active Substance: PIPERACILLIN SODIUM\TAZOBACTAM SODIUM
     Indication: Sepsis
     Dates: start: 20220609, end: 20220611
  14. HYDROCORTISONE [Concomitant]
     Active Substance: HYDROCORTISONE\HYDROCORTISONE ACETATE
     Indication: Urinary tract infection
     Route: 048
     Dates: start: 20210601, end: 20210607
  15. HYDROCORTISONE [Concomitant]
     Active Substance: HYDROCORTISONE\HYDROCORTISONE ACETATE
     Indication: Urinary tract infection
     Route: 048
     Dates: start: 20210530, end: 20210531

REACTIONS (1)
  - Urinary tract infection [Recovered/Resolved]

NARRATIVE: CASE EVENT DATE: 20210529
